FAERS Safety Report 4805490-8 (Version None)
Quarter: 2005Q4

REPORT INFORMATION
  Report Type: 
  Country: None (occurrence: None)
  Receive Date: 20051018
  Receipt Date: 20051011
  Transmission Date: 20060501
  Serious: Yes (Death)
  Sender: FDA-Public Use
  Company Number: GBR-2005-0001921

PATIENT
  Sex: Female

DRUGS (3)
  1. BUPRENORPHINE HYDROCHLORIDE [Suspect]
     Indication: CANCER PAIN
     Dosage: 35 MCG, Q1H, TRANSDERMAL
     Route: 062
     Dates: start: 20050727, end: 20050819
  2. ANTIEMETIC [Concomitant]
  3. LAXATIVES [Concomitant]

REACTIONS (2)
  - MALIGNANT NEOPLASM PROGRESSION [None]
  - OVARIAN CANCER [None]
